FAERS Safety Report 10142267 (Version 1)
Quarter: 2014Q2

REPORT INFORMATION
  Report Type: Spontaneous
  Country: US (occurrence: US)
  Receive Date: 20140430
  Receipt Date: 20140430
  Transmission Date: 20141212
  Serious: No
  Sender: FDA-Public Use
  Company Number: US-009507513-1404USA014579

PATIENT
  Sex: Male

DRUGS (1)
  1. GRASTEK [Suspect]
     Indication: SEASONAL ALLERGY
     Dosage: UNK
     Route: 060
     Dates: start: 20140422

REACTIONS (1)
  - Nausea [Recovered/Resolved]
